FAERS Safety Report 23211475 (Version 3)
Quarter: 2023Q4

REPORT INFORMATION
  Report Type: Spontaneous
  Country: US (occurrence: US)
  Receive Date: 20231121
  Receipt Date: 20231221
  Transmission Date: 20240109
  Serious: No
  Sender: FDA-Public Use
  Company Number: US-PFIZER INC-202300362758

PATIENT
  Age: 1 Year
  Sex: Male
  Weight: 9.524 kg

DRUGS (1)
  1. GENOTROPIN [Suspect]
     Active Substance: SOMATROPIN
     Indication: Growth hormone deficiency
     Dosage: 0.4 MG, 1X/DAY (ONCE A NIGHT AT BEDTIME)

REACTIONS (1)
  - Device breakage [Unknown]
